FAERS Safety Report 12226162 (Version 3)
Quarter: 2016Q2

REPORT INFORMATION
  Report Type: Spontaneous
  Country: US (occurrence: US)
  Receive Date: 20160331
  Receipt Date: 20160407
  Transmission Date: 20160815
  Serious: Yes (Other)
  Sender: FDA-Public Use
  Company Number: US-BAXALTA-2016BLT002002

PATIENT
  Sex: Male
  Weight: 109 kg

DRUGS (1)
  1. HYQVIA [Suspect]
     Active Substance: HUMAN IMMUNOGLOBULIN G\HYALURONIDASE RECOMBINANT HUMAN
     Indication: IMMUNODEFICIENCY COMMON VARIABLE
     Dosage: 60 G, EVERY 4 WK
     Route: 058
     Dates: start: 20151207

REACTIONS (2)
  - Infusion site infection [Not Recovered/Not Resolved]
  - Skin lesion [Not Recovered/Not Resolved]
